FAERS Safety Report 14453168 (Version 1)
Quarter: 2018Q1

REPORT INFORMATION
  Report Type: Spontaneous
  Country: US (occurrence: US)
  Receive Date: 20180129
  Receipt Date: 20180129
  Transmission Date: 20180509
  Serious: No
  Sender: FDA-Public Use
  Company Number: US-PERRIGO-17US027920

PATIENT
  Age: 28 Year
  Sex: Male
  Weight: 81.63 kg

DRUGS (2)
  1. RITALIN [Concomitant]
     Active Substance: METHYLPHENIDATE HYDROCHLORIDE
     Indication: ATTENTION DEFICIT/HYPERACTIVITY DISORDER
     Dosage: UNKNOWN, UNKNOWN
     Route: 065
  2. OMEPRAZOLE AND SODIUM BICARBONATE [Suspect]
     Active Substance: OMEPRAZOLE\SODIUM BICARBONATE
     Indication: GASTROOESOPHAGEAL REFLUX DISEASE
     Dosage: 1 CAPSULE, SINGLE
     Route: 048
     Dates: start: 20171027, end: 20171027

REACTIONS (1)
  - Abdominal pain upper [Recovered/Resolved]

NARRATIVE: CASE EVENT DATE: 20171027
